FAERS Safety Report 5165754-8 (Version None)
Quarter: 2006Q4

REPORT INFORMATION
  Report Type: 
  Country: None (occurrence: None)
  Receive Date: 20061128
  Receipt Date: 20061117
  Transmission Date: 20070319
  Serious: Yes (Other)
  Sender: FDA-Public Use
  Company Number: GXKR2006GB07484

PATIENT
  Age: 58 Year
  Sex: Male

DRUGS (2)
  1. HEPARIN [Suspect]
     Indication: DEEP VEIN THROMBOSIS
  2. WARFARIN SODIUM [Suspect]
     Dosage: 10 MG LOADING DOSE,

REACTIONS (8)
  - AXILLARY VEIN THROMBOSIS [None]
  - BRONCHIAL CARCINOMA [None]
  - CARDIAC TAMPONADE [None]
  - HEPARIN-INDUCED THROMBOCYTOPENIA [None]
  - INTERNATIONAL NORMALISED RATIO INCREASED [None]
  - LEUKOCYTOSIS [None]
  - PNEUMONIA [None]
  - SKIN NECROSIS [None]
